FAERS Safety Report 4865625-8 (Version None)
Quarter: 2005Q4

REPORT INFORMATION
  Report Type: 
  Country: None (occurrence: None)
  Receive Date: 20051220
  Receipt Date: 20051208
  Transmission Date: 20060501
  Serious: Yes (Other)
  Sender: FDA-Public Use
  Company Number: 2005166254

PATIENT
  Age: 63 Year
  Sex: Male
  Weight: 91.173 kg

DRUGS (10)
  1. LIPITOR [Suspect]
     Indication: BLOOD CHOLESTEROL INCREASED
     Dosage: ORAL
     Route: 048
  2. VIAGRA [Suspect]
     Indication: ERECTILE DYSFUNCTION
     Dosage: (ONE TIME ONLY), ORAL
     Route: 048
  3. AVANDIA [Concomitant]
  4. GLYBURIDE [Concomitant]
  5. GLYNASE [Concomitant]
  6. PROPECIA [Concomitant]
  7. GLUCOPHAGE [Concomitant]
  8. COZAAR [Concomitant]
  9. HYDROCHLOROTHIAZIDE [Concomitant]
  10. TOPROL (METOPROLOL) [Concomitant]

REACTIONS (14)
  - ANAEMIA [None]
  - ANGIOGRAM ABNORMAL [None]
  - ARTHRITIS [None]
  - CEREBROVASCULAR ACCIDENT [None]
  - ERECTILE DYSFUNCTION [None]
  - FEAR [None]
  - HEART RATE INCREASED [None]
  - MYALGIA [None]
  - OEDEMA [None]
  - PROSTATE EXAMINATION ABNORMAL [None]
  - SKIN DISCOLOURATION [None]
  - SKULL X-RAY ABNORMAL [None]
  - URINE FLOW DECREASED [None]
  - VASCULAR OCCLUSION [None]
